FAERS Safety Report 11135655 (Version 1)
Quarter: 2015Q2

REPORT INFORMATION
  Report Type: Spontaneous
  Country: US (occurrence: None)
  Receive Date: 20150522
  Receipt Date: 20150522
  Transmission Date: 20150821
  Serious: No
  Sender: FDA-Public Use
  Company Number: None

PATIENT
  Sex: Female

DRUGS (1)
  1. TARCEVA [Suspect]
     Active Substance: ERLOTINIB HYDROCHLORIDE
     Dosage: 4/1 - 2/20
     Route: 048

REACTIONS (7)
  - Cough [None]
  - Diarrhoea [None]
  - Joint swelling [None]
  - Nausea [None]
  - Vomiting [None]
  - Fluid retention [None]
  - Dyspnoea [None]
